FAERS Safety Report 17426792 (Version 1)
Quarter: 2020Q1

REPORT INFORMATION
  Report Type: Spontaneous
  Country: US (occurrence: US)
  Receive Date: 20200218
  Receipt Date: 20200218
  Transmission Date: 20200409
  Serious: No
  Sender: FDA-Public Use
  Company Number: US-009507513-2002USA001498

PATIENT
  Sex: Female

DRUGS (1)
  1. COZAAR [Suspect]
     Active Substance: LOSARTAN POTASSIUM
     Dosage: UNK

REACTIONS (1)
  - Fall [Unknown]
